FAERS Safety Report 9838487 (Version 2)
Quarter: 2014Q1

REPORT INFORMATION
  Report Type: Spontaneous
  Country: US (occurrence: US)
  Receive Date: 20140123
  Receipt Date: 20140123
  Transmission Date: 20141002
  Serious: No
  Sender: FDA-Public Use
  Company Number: US-ASTELLAS-2012US011995

PATIENT
  Sex: Female

DRUGS (6)
  1. TARCEVA [Suspect]
     Indication: LUNG CARCINOMA CELL TYPE UNSPECIFIED STAGE 0
     Dosage: 150 MG, UID/QD
     Route: 048
     Dates: start: 201205
  2. TARCEVA [Suspect]
     Indication: OVARIAN CANCER
     Dosage: 75 MG, QOD (ALTERNATING WITH 50 MG QOD)
     Route: 048
     Dates: start: 20120924
  3. TARCEVA [Suspect]
     Indication: METASTASES TO LUNG
     Dosage: 75 MG QOD ALTERNATING WITH 100 MG QOD
     Route: 048
     Dates: start: 20121023
  4. TARCEVA [Suspect]
     Dosage: 75 MG, UID/QD
     Route: 048
     Dates: start: 201211
  5. TARCEVA [Suspect]
     Dosage: 100 MG, UID/QD
     Route: 048
     Dates: start: 20121129
  6. ZANTAC [Concomitant]
     Indication: GASTROOESOPHAGEAL REFLUX DISEASE
     Dosage: UNK
     Route: 065

REACTIONS (2)
  - Off label use [Unknown]
  - Gastrooesophageal reflux disease [Not Recovered/Not Resolved]
